FAERS Safety Report 5221816-8 (Version None)
Quarter: 2007Q1

REPORT INFORMATION
  Report Type: 
  Country: None (occurrence: None)
  Receive Date: 20070126
  Receipt Date: 20070126
  Transmission Date: 20070707
  Serious: Yes (Death)
  Sender: FDA-Public Use
  Company Number: None

PATIENT
  Age: 40 Year
  Sex: Female
  Weight: 61.6892 kg

DRUGS (6)
  1. GEMCITABINE [Suspect]
     Indication: HIV INFECTION
     Dosage: 200 MG QHS PO
     Route: 048
     Dates: start: 20061221, end: 20070108
  2. TENOFOVIR DISOPROXIL FUMARATE [Suspect]
     Indication: HIV INFECTION
     Dosage: 300 MG QHS PO
     Route: 048
     Dates: start: 20061221, end: 20070108
  3. EFAVIRENZ [Suspect]
     Indication: HIV INFECTION
     Dosage: 600 MG QHS PO
     Route: 048
     Dates: start: 20061221, end: 20070108
  4. SULFAMETHOXAZOLE AND TRIMETHOPRIM [Concomitant]
  5. IRON PREPARATIONS [Concomitant]
  6. VITAMIN B COMPLEX CAP [Concomitant]

REACTIONS (1)
  - DEATH [None]
